FAERS Safety Report 15930501 (Version 1)
Quarter: 2019Q1

REPORT INFORMATION
  Report Type: Report from Study
  Country: ES (occurrence: ES)
  Receive Date: 20190207
  Receipt Date: 20190207
  Transmission Date: 20190417
  Serious: Yes (Other)
  Sender: FDA-Public Use
  Company Number: ES-ROCHE-GNE318437

PATIENT
  Age: 13 Year
  Sex: Female

DRUGS (4)
  1. LEVOTHYROXINE. [Concomitant]
     Active Substance: LEVOTHYROXINE
     Dosage: 100 MICROG UNK
     Route: 065
     Dates: start: 20070724
  2. SOMATROPIN. [Suspect]
     Active Substance: SOMATROPIN
     Indication: NERVOUS SYSTEM DISORDER
     Dosage: 1.4 MG, UNK
     Route: 065
     Dates: start: 20070508, end: 20101119
  3. COLECALCIFEROL [Concomitant]
     Active Substance: CHOLECALCIFEROL
     Dosage: 800 U, UNK, DOSE-800 U
     Route: 065
     Dates: start: 20091118
  4. ETOPOSIDE. [Concomitant]
     Active Substance: ETOPOSIDE
     Indication: TRANSPLANT
     Route: 065
     Dates: start: 20070724

REACTIONS (1)
  - Osteosarcoma [Recovering/Resolving]

NARRATIVE: CASE EVENT DATE: 20101119
